FAERS Safety Report 24291238 (Version 1)
Quarter: 2024Q3

REPORT INFORMATION
  Report Type: Spontaneous
  Country: US (occurrence: None)
  Receive Date: 20240906
  Receipt Date: 20240906
  Transmission Date: 20241017
  Serious: No
  Sender: DOMPE FARMACEUTICI
  Company Number: US-FARMAPROD-202308-2408

PATIENT
  Age: 87 Year
  Sex: Female

DRUGS (13)
  1. OXERVATE [Suspect]
     Active Substance: CENEGERMIN-BKBJ
     Indication: Neurotrophic keratopathy
     Route: 047
     Dates: start: 20230808
  2. LYRICA [Concomitant]
     Active Substance: PREGABALIN
  3. POTASSIUM [Concomitant]
     Active Substance: POTASSIUM
     Dosage: 595(99)
  4. PROTONIX [Concomitant]
     Active Substance: PANTOPRAZOLE SODIUM
  5. METOPROLOL SUCCINATE [Concomitant]
     Active Substance: METOPROLOL SUCCINATE
  6. LASIX [Concomitant]
     Active Substance: FUROSEMIDE
  7. FISH OIL [Concomitant]
     Active Substance: FISH OIL
     Dosage: 300-1000MG
  8. CELEBREX [Concomitant]
     Active Substance: CELECOXIB
  9. CALCIUM 500-VITAMIN D3 [Concomitant]
  10. LIPITOR [Concomitant]
     Active Substance: ATORVASTATIN CALCIUM
  11. ELIQUIS [Concomitant]
     Active Substance: APIXABAN
  12. NORVASC [Concomitant]
     Active Substance: AMLODIPINE BESYLATE
  13. UNSPECIFIED INGREDIENT [Concomitant]
     Active Substance: UNSPECIFIED INGREDIENT

REACTIONS (1)
  - Product administration error [Recovered/Resolved]

NARRATIVE: CASE EVENT DATE: 20230811
